FAERS Safety Report 8439036-2 (Version None)
Quarter: 2012Q2

REPORT INFORMATION
  Report Type: 
  Country: None (occurrence: None)
  Receive Date: 20120615
  Receipt Date: 20120604
  Transmission Date: 20120825
  Serious: Yes (Hospitalization, Other)
  Sender: FDA-Public Use
  Company Number: US-ELI_LILLY_AND_COMPANY-US201206001319

PATIENT
  Age: 7 Year
  Sex: Female

DRUGS (2)
  1. ZYPREXA [Suspect]
  2. INTUNIV [Concomitant]

REACTIONS (2)
  - OFF LABEL USE [None]
  - CONVULSION [None]
